FAERS Safety Report 8775788 (Version 1)
Quarter: 2012Q4

REPORT INFORMATION
  Report Type: 
  Country: US (occurrence: US)
  Receive Date: 20120910
  Receipt Date: 20120910
  Transmission Date: 20130627
  Serious: Yes (Other)
  Sender: FDA-Public Use
  Company Number: US-PFIZER INC-2012219263

PATIENT
  Age: 28 Year
  Sex: Female

DRUGS (2)
  1. MISOPROSTOL [Suspect]
     Indication: POSTPARTUM HAEMORRHAGE
     Dosage: 1600 mg
     Route: 048
  2. ARMOUR THYROID [Concomitant]
     Dosage: Unk

REACTIONS (4)
  - Myocardial ischaemia [Unknown]
  - Hyperthermia [Recovered/Resolved]
  - Delirium [Recovered/Resolved]
  - Tachycardia [Recovered/Resolved]
